FAERS Safety Report 23941163 (Version 5)
Quarter: 2024Q4

REPORT INFORMATION
  Report Type: Spontaneous
  Country: CA (occurrence: CA)
  Receive Date: 20240605
  Receipt Date: 20241024
  Transmission Date: 20250115
  Serious: No
  Sender: PFIZER
  Company Number: CA-PFIZER INC-202400182496

PATIENT
  Age: 63 Year
  Sex: Male

DRUGS (4)
  1. ABRILADA [Suspect]
     Active Substance: ADALIMUMAB-AFZB
     Indication: Crohn^s disease
     Dosage: 4 DOSES(160MG)
     Route: 058
     Dates: start: 20240515
  2. ABRILADA [Suspect]
     Active Substance: ADALIMUMAB-AFZB
     Dosage: 2 DOSES(80MG)
     Route: 058
     Dates: start: 20240522
  3. ABRILADA [Suspect]
     Active Substance: ADALIMUMAB-AFZB
     Dosage: 40 MG, WEEKLY (PREFILLED PEN)
     Route: 058
     Dates: start: 202405
  4. ABRILADA [Suspect]
     Active Substance: ADALIMUMAB-AFZB
     Dosage: 40 MG, WEEKLY (PREFILLED PEN)
     Route: 058
     Dates: start: 20240530

REACTIONS (4)
  - Device mechanical issue [Unknown]
  - Injection site laceration [Unknown]
  - Drug dose omission by device [Unknown]
  - Injection site haemorrhage [Unknown]

NARRATIVE: CASE EVENT DATE: 20240529
